FAERS Safety Report 8503891-8 (Version None)
Quarter: 2012Q3

REPORT INFORMATION
  Report Type: 
  Country: None (occurrence: None)
  Receive Date: 20120711
  Receipt Date: 20120702
  Transmission Date: 20120928
  Serious: Yes (Life-Threatening, Hospitalization)
  Sender: FDA-Public Use
  Company Number: FR-BRISTOL-MYERS SQUIBB COMPANY-16734949

PATIENT
  Age: 46 Year
  Sex: Male
  Weight: 67 kg

DRUGS (2)
  1. ETOPOSIDE [Suspect]
     Indication: NON-SMALL CELL LUNG CANCER STAGE III
     Dosage: LAST DOSE ON 15JUN12
     Route: 042
     Dates: start: 20120514
  2. CISPLATIN [Suspect]
     Indication: NON-SMALL CELL LUNG CANCER STAGE III
     Dosage: ON D1-8,NOT RECEIVED ON 21MAY12,LAST DOSE ON 15JUN12
     Route: 042
     Dates: start: 20120514

REACTIONS (3)
  - PULMONARY HAEMORRHAGE [None]
  - BONE MARROW FAILURE [None]
  - DYSPHAGIA [None]
